FAERS Safety Report 4356938-7 (Version None)
Quarter: 2004Q2

REPORT INFORMATION
  Report Type: 
  Country: None (occurrence: None)
  Receive Date: 20040507
  Receipt Date: 20040430
  Transmission Date: 20050107
  Serious: Yes (Hospitalization)
  Sender: FDA-Public Use
  Company Number: JP-JNJFOC-20040406582

PATIENT
  Age: 36 Year
  Sex: Female

DRUGS (4)
  1. LEVOFLOXACIN [Suspect]
     Indication: PLEURISY
     Dosage: INTRAVENOUS
     Route: 042
     Dates: start: 20040319, end: 20040323
  2. ROCEPHIN [Concomitant]
  3. ROVAMYCINE (SPIRAMYCIN) [Concomitant]
  4. LEVOTHYROXINE SODIUM [Concomitant]

REACTIONS (3)
  - DELIRIUM [None]
  - PLEURISY [None]
  - PNEUMOCOCCAL INFECTION [None]
